FAERS Safety Report 8601952-6 (Version None)
Quarter: 2012Q3

REPORT INFORMATION
  Report Type: 
  Country: None (occurrence: None)
  Receive Date: 20120817
  Receipt Date: 20120607
  Transmission Date: 20120928
  Serious: No
  Sender: FDA-Public Use
  Company Number: US-BRISTOL-MYERS SQUIBB COMPANY-16671059

PATIENT
  Age: 52 Year
  Sex: Female
  Weight: 68 kg

DRUGS (1)
  1. SPRYCEL [Suspect]
     Indication: CHRONIC MYELOID LEUKAEMIA
     Dosage: INTERRUPTED ON: 31MAY2012 REDUCED DOSE ON:06JUN12 70MG

REACTIONS (7)
  - FEELING ABNORMAL [None]
  - MYALGIA [None]
  - HEADACHE [None]
  - CRYING [None]
  - AFFECT LABILITY [None]
  - PAIN [None]
  - HYPERSOMNIA [None]
